FAERS Safety Report 6551729-0 (Version None)
Quarter: 2010Q1

REPORT INFORMATION
  Report Type: 
  Country: None (occurrence: None)
  Receive Date: 20100126
  Receipt Date: 20100120
  Transmission Date: 20100710
  Serious: Yes (Hospitalization)
  Sender: FDA-Public Use
  Company Number: US-ELI_LILLY_AND_COMPANY-US201001004582

PATIENT
  Sex: Female
  Weight: 176.42 kg

DRUGS (15)
  1. BYETTA [Suspect]
     Indication: TYPE 2 DIABETES MELLITUS
     Dosage: 5 UG, 2/D
     Route: 058
     Dates: start: 20070901, end: 20071001
  2. BYETTA [Suspect]
     Dosage: 10 UG, 2/D
     Route: 058
     Dates: start: 20071001
  3. LORATADINE [Concomitant]
  4. PROTONIX [Concomitant]
  5. ZOCOR [Concomitant]
  6. LEXAPRO [Concomitant]
  7. CALCIUM + VITAMIN D [Concomitant]
  8. LYRICA [Concomitant]
  9. METFORMIN HCL [Concomitant]
  10. FLUTICASONE [Concomitant]
     Route: 045
  11. WELLBUTRIN XL [Concomitant]
     Dosage: 100 MG, DAILY (1/D)
     Dates: start: 20091201
  12. MULTIVITAMINS PLUS IRON [Concomitant]
  13. BABY ASPIRIN [Concomitant]
     Dosage: 81 MG, UNK
  14. TYLENOL                                 /SCH/ [Concomitant]
     Indication: PAIN
     Dosage: UNK, AS NEEDED
  15. AVANDIA [Concomitant]
     Dates: end: 20080101

REACTIONS (11)
  - BLOOD GLUCOSE DECREASED [None]
  - DIZZINESS [None]
  - EPISTAXIS [None]
  - FACIAL BONES FRACTURE [None]
  - FALL [None]
  - LIPOMA [None]
  - NON-CARDIAC CHEST PAIN [None]
  - OESOPHAGEAL SPASM [None]
  - OSTEOPOROSIS [None]
  - UPPER LIMB FRACTURE [None]
  - WEIGHT DECREASED [None]
